FAERS Safety Report 5545676-0 (Version None)
Quarter: 2007Q4

REPORT INFORMATION
  Report Type: 
  Country: None (occurrence: None)
  Receive Date: 20071206
  Receipt Date: 20071127
  Transmission Date: 20080405
  Serious: Yes (Other)
  Sender: FDA-Public Use
  Company Number: CAP07000472

PATIENT
  Sex: Female

DRUGS (2)
  1. ETIDRONATE DISODIUM [Suspect]
     Indication: OSTEOPENIA
     Dosage: 1 TABLET CYCLIC DAILY, ORAL
     Route: 048
  2. WARFARIN SODIUM [Concomitant]

REACTIONS (2)
  - ATRIAL FIBRILLATION [None]
  - INTERNATIONAL NORMALISED RATIO ABNORMAL [None]
